FAERS Safety Report 5941445-8 (Version None)
Quarter: 2008Q4

REPORT INFORMATION
  Report Type: 
  Country: None (occurrence: None)
  Receive Date: 20081031
  Receipt Date: 20081020
  Transmission Date: 20090506
  Serious: Yes (Other)
  Sender: FDA-Public Use
  Company Number: TPH-00111

PATIENT
  Age: 27 Year
  Sex: Female

DRUGS (1)
  1. TRIQUILAR (21) [Suspect]
     Indication: ORAL CONTRACEPTION
     Dosage: ORAL
     Route: 048
     Dates: start: 20070501, end: 20070917

REACTIONS (14)
  - ABDOMINAL PAIN [None]
  - ABORTION THREATENED [None]
  - CAESAREAN SECTION [None]
  - DIARRHOEA [None]
  - DRUG EXPOSURE DURING PREGNANCY [None]
  - HYPERSENSITIVITY [None]
  - INAPPROPRIATE SCHEDULE OF DRUG ADMINISTRATION [None]
  - INTENTIONAL DRUG MISUSE [None]
  - MUSCLE SPASMS [None]
  - PAIN [None]
  - PREGNANCY ON ORAL CONTRACEPTIVE [None]
  - PRURITUS [None]
  - SKIN DISCOLOURATION [None]
  - UTERINE CONTRACTIONS DURING PREGNANCY [None]
